FAERS Safety Report 23917934 (Version 7)
Quarter: 2025Q3

REPORT INFORMATION
  Report Type: Spontaneous
  Country: EU (occurrence: EU)
  Receive Date: 20240530
  Receipt Date: 20250925
  Transmission Date: 20251021
  Serious: Yes (Death, Hospitalization, Other)
  Sender: AUROBINDO
  Company Number: EU-002147023-NVSC2024DE101480

PATIENT
  Sex: Female
  Weight: 82.4 kg

DRUGS (5)
  1. FULVESTRANT [Suspect]
     Active Substance: FULVESTRANT
     Indication: Hormone receptor positive HER2 negative breast cancer
     Dosage: 500 MILLIGRAM, ONCE A DAY (EVERY FOUR WEEKS)
     Route: 030
     Dates: start: 20201130, end: 20240414
  2. KISQALI [Suspect]
     Active Substance: RIBOCICLIB SUCCINATE
     Indication: Hormone receptor positive HER2 negative breast cancer
     Dosage: 600 MILLIGRAM, ONCE A DAY
     Route: 048
     Dates: start: 20201201, end: 20210712
  3. KISQALI [Suspect]
     Active Substance: RIBOCICLIB SUCCINATE
     Dosage: 600 MILLIGRAM, ONCE A DAY
     Route: 048
     Dates: start: 20210719, end: 20210815
  4. KISQALI [Suspect]
     Active Substance: RIBOCICLIB SUCCINATE
     Dosage: 400 MILLIGRAM, ONCE A DAY (SCHEMA 21 DAYS INTAKE/ 7 DAYS PAUSE)
     Route: 065
     Dates: start: 20210824, end: 20240205
  5. KISQALI [Suspect]
     Active Substance: RIBOCICLIB SUCCINATE
     Dosage: 400 MILLIGRAM, ONCE A DAY (OTHER: 21 DAYS / 2 WEEKS PAUSE)
     Route: 048
     Dates: start: 20240206, end: 20240415

REACTIONS (4)
  - Pneumocystis jirovecii pneumonia [Fatal]
  - Pneumonitis [Not Recovered/Not Resolved]
  - Dizziness [Recovering/Resolving]
  - Neutropenia [Recovered/Resolved]

NARRATIVE: CASE EVENT DATE: 20231212
